FAERS Safety Report 10700245 (Version 2)
Quarter: 2015Q3

REPORT INFORMATION
  Report Type: Spontaneous
  Country: US (occurrence: US)
  Receive Date: 20150109
  Receipt Date: 20150911
  Transmission Date: 20151125
  Serious: No
  Sender: FDA-Public Use
  Company Number: US-PFIZER INC-2015007966

PATIENT
  Age: 62 Year
  Sex: Male
  Weight: 109 kg

DRUGS (6)
  1. LYRICA [Suspect]
     Active Substance: PREGABALIN
     Dosage: 100 MG, 2X/DAY(100MG IN THE MORNING AND 100MG IN THE NIGHT)
  2. LYRICA [Suspect]
     Active Substance: PREGABALIN
     Dosage: 200 MG, 1X/DAY (BOTH THE 100MG AT NIGHT)
  3. LYRICA [Suspect]
     Active Substance: PREGABALIN
     Indication: NERVE COMPRESSION
     Dosage: 150 MG, 2X/DAY (MORNING AND NIGHT)
  4. VERAPAMIL [Concomitant]
     Active Substance: VERAPAMIL HYDROCHLORIDE
     Indication: BLOOD PRESSURE ABNORMAL
     Dosage: 1 DF 2X/DAY (ONE IN MORNING AND TWO AT NIGHT)
  5. LYRICA [Suspect]
     Active Substance: PREGABALIN
     Dosage: 150 MG, 2X/DAY (50 MG IN MORNING AND 100 AT NIGHT)
  6. ASPIRIN. [Concomitant]
     Active Substance: ASPIRIN
     Dosage: 1 DF, DAILY

REACTIONS (6)
  - Faeces discoloured [Unknown]
  - Skin disorder [Unknown]
  - Product use issue [Unknown]
  - Diarrhoea [Unknown]
  - Amnesia [Unknown]
  - Migraine [Recovered/Resolved]
